APPROVED DRUG PRODUCT: MUPIROCIN
Active Ingredient: MUPIROCIN CALCIUM
Strength: EQ 2% BASE
Dosage Form/Route: CREAM;TOPICAL
Application: A201587 | Product #001 | TE Code: AB
Applicant: GLENMARK PHARMACEUTICALS INC USA
Approved: Jan 24, 2013 | RLD: No | RS: Yes | Type: RX